FAERS Safety Report 5859690-9 (Version None)
Quarter: 2008Q3

REPORT INFORMATION
  Report Type: 
  Country: None (occurrence: None)
  Receive Date: 20080827
  Receipt Date: 20080820
  Transmission Date: 20090109
  Serious: Yes (Other)
  Sender: FDA-Public Use
  Company Number: US-WATSON-2006-02257

PATIENT
  Age: 52 Year
  Sex: Female
  Weight: 66.667 kg

DRUGS (11)
  1. PREDNISONE TAB [Suspect]
     Indication: DEAFNESS
     Dosage: 50 MG, DAILY TAPERED X 3 WKS
     Route: 048
     Dates: start: 20040501, end: 20040501
  2. PREDNISONE TAB [Suspect]
     Indication: TINNITUS
  3. PREDNISONE TAB [Suspect]
     Dosage: UNK
  4. TRIAMTERENE [Suspect]
     Indication: DRUG USE FOR UNKNOWN INDICATION
     Dosage: UNK
     Route: 065
     Dates: start: 20040101
  5. ZANTAC [Suspect]
     Indication: DRUG USE FOR UNKNOWN INDICATION
     Dosage: UNK
     Dates: start: 20040101
  6. METHYLPREDNISOLONE [Concomitant]
     Indication: DEAFNESS
     Dosage: DOSEPACK, UNKNOWN X 3 DAYS
     Route: 048
     Dates: start: 20040501
  7. METHYLPREDNISOLONE [Concomitant]
     Indication: TINNITUS
  8. METHYLPREDNISOLONE [Concomitant]
     Indication: SINUSITIS
  9. METHYLPREDNISOLONE [Concomitant]
     Indication: HERPES OPHTHALMIC
  10. MULTI-VITAMINS [Concomitant]
     Indication: DRUG USE FOR UNKNOWN INDICATION
     Dosage: UNK, UNKNOWN
     Route: 048
  11. VITAMIN B COMPLEX CAP [Concomitant]
     Indication: SUPPLEMENTATION THERAPY
     Dosage: UNK, UNKNOWN
     Route: 048

REACTIONS (18)
  - BIPOLAR I DISORDER [None]
  - EAR PAIN [None]
  - EMOTIONAL DISORDER [None]
  - EMOTIONAL DISTRESS [None]
  - EXOPHTHALMOS [None]
  - FEAR [None]
  - HALLUCINATIONS, MIXED [None]
  - HEADACHE [None]
  - ILLUSION [None]
  - IMPAIRED WORK ABILITY [None]
  - MUSCULAR WEAKNESS [None]
  - NEUROTRANSMITTER LEVEL ALTERED [None]
  - PSYCHOTIC DISORDER [None]
  - SCREAMING [None]
  - SOMNOLENCE [None]
  - SUICIDAL IDEATION [None]
  - TRIGEMINAL NEURALGIA [None]
  - WEIGHT DECREASED [None]
